FAERS Safety Report 7701719-7 (Version None)
Quarter: 2011Q3

REPORT INFORMATION
  Report Type: 
  Country: None (occurrence: None)
  Receive Date: 20110822
  Receipt Date: 20110815
  Transmission Date: 20111222
  Serious: Yes (Hospitalization)
  Sender: FDA-Public Use
  Company Number: US-BAYER-2011-021957

PATIENT
  Age: 17 Year
  Sex: Female
  Weight: 79.365 kg

DRUGS (2)
  1. YASMIN [Suspect]
     Indication: ACNE
     Dosage: UNK
     Dates: start: 20070201, end: 20070801
  2. YASMIN [Suspect]
     Indication: MENSTRUATION IRREGULAR

REACTIONS (6)
  - THROMBOSIS [None]
  - PANIC ATTACK [None]
  - INJURY [None]
  - PAIN [None]
  - DEEP VEIN THROMBOSIS [None]
  - MENTAL DISORDER [None]
